FAERS Safety Report 14403641 (Version 1)
Quarter: 2018Q1

REPORT INFORMATION
  Report Type: Spontaneous
  Country: FR (occurrence: FR)
  Receive Date: 20180117
  Receipt Date: 20180117
  Transmission Date: 20180509
  Serious: Yes (Hospitalization)
  Sender: FDA-Public Use
  Company Number: FR-PFIZER INC-2018021658

PATIENT
  Age: 58 Year
  Sex: Female
  Weight: 72 kg

DRUGS (1)
  1. SALAZOPYRINE [Suspect]
     Active Substance: SULFASALAZINE
     Indication: ANKYLOSING SPONDYLITIS
     Dosage: 4 DF, 1X/DAY
     Route: 048
     Dates: start: 2017, end: 20171208

REACTIONS (6)
  - Blood alkaline phosphatase increased [Unknown]
  - Vomiting [Recovered/Resolved]
  - Gamma-glutamyltransferase increased [Unknown]
  - Paraesthesia oral [Recovered/Resolved]
  - Genital paraesthesia [Recovered/Resolved]
  - Transaminases increased [Unknown]

NARRATIVE: CASE EVENT DATE: 20171203
